FAERS Safety Report 4336569-5 (Version None)
Quarter: 2004Q2

REPORT INFORMATION
  Report Type: 
  Country: None (occurrence: None)
  Receive Date: 20040407
  Receipt Date: 20040322
  Transmission Date: 20050107
  Serious: Yes (Hospitalization, Disabling)
  Sender: FDA-Public Use
  Company Number: 200410896GDS

PATIENT
  Age: 59 Year
  Sex: Female

DRUGS (4)
  1. ASPIRIN [Suspect]
     Indication: ACUTE MYOCARDIAL INFARCTION
     Dosage: 100 MG, TOTAL DAILY
  2. HEPARIN [Suspect]
     Indication: ACUTE MYOCARDIAL INFARCTION
     Dosage: 25000 U, TOTAL DAILY, INTRAVENOUS
     Route: 042
  3. TISSUE PLASMINOGEN ACTIVATOR (TISSUE PLASMINOGEN ACTIVATOR, RECOMBINAT [Suspect]
     Indication: ACUTE MYOCARDIAL INFARCTION
     Dosage: 100 MG, TOTAL DAILY,
  4. METOPROLOL [Concomitant]

REACTIONS (2)
  - EXTRADURAL HAEMATOMA [None]
  - PARAPLEGIA [None]
